FAERS Safety Report 7801493-X (Version None)
Quarter: 2011Q4

REPORT INFORMATION
  Report Type: 
  Country: None (occurrence: None)
  Receive Date: 20111007
  Receipt Date: 20110927
  Transmission Date: 20120403
  Serious: Yes (Hospitalization)
  Sender: FDA-Public Use
  Company Number: US-JNJFOC-20111000276

PATIENT
  Age: 16 Year
  Sex: Female

DRUGS (2)
  1. INFLIXIMAB, RECOMBINANT [Suspect]
     Route: 042
  2. INFLIXIMAB, RECOMBINANT [Suspect]
     Indication: CROHN'S DISEASE
     Route: 042
     Dates: start: 20060707

REACTIONS (11)
  - CONDITION AGGRAVATED [None]
  - ABDOMINAL PAIN [None]
  - GASTROINTESTINAL PAIN [None]
  - ECZEMA [None]
  - BACK PAIN [None]
  - CROHN'S DISEASE [None]
  - CONSTIPATION [None]
  - EATING DISORDER [None]
  - ILEAL STENOSIS [None]
  - SCAR [None]
  - DERMATITIS CONTACT [None]
